FAERS Safety Report 24568392 (Version 2)
Quarter: 2024Q4

REPORT INFORMATION
  Report Type: Report from Study
  Country: TW (occurrence: TW)
  Receive Date: 20241031
  Receipt Date: 20241105
  Transmission Date: 20250115
  Serious: Yes (Death, Other)
  Sender: ROCHE
  Company Number: TW-ROCHE-10000119669

PATIENT

DRUGS (1)
  1. BEVACIZUMAB [Suspect]
     Active Substance: BEVACIZUMAB
     Indication: Age-related macular degeneration
     Route: 050

REACTIONS (8)
  - Off label use [Unknown]
  - Off label use [Unknown]
  - Cardiac failure [Unknown]
  - Haemorrhage [Unknown]
  - Embolism [Unknown]
  - Myocardial infarction [Unknown]
  - Ischaemic stroke [Unknown]
  - Cardiac death [Fatal]
